FAERS Safety Report 4678377-1 (Version None)
Quarter: 2005Q2

REPORT INFORMATION
  Report Type: 
  Country: None (occurrence: None)
  Receive Date: 20050601
  Receipt Date: 20050525
  Transmission Date: 20051028
  Serious: Yes (Death)
  Sender: FDA-Public Use
  Company Number: US-KINGPHARMUSA00001-K200500693

PATIENT
  Age: 77 Year
  Sex: Female

DRUGS (4)
  1. ALTACE [Suspect]
     Indication: ESSENTIAL HYPERTENSION
     Dosage: 10 MG, QD
     Route: 048
     Dates: start: 20020205, end: 20031114
  2. CELEBREX [Suspect]
     Indication: OSTEOARTHRITIS
     Dosage: 200 MG, QD
     Route: 048
     Dates: start: 20011204, end: 20031114
  3. NATRILIX - SLOW RELEASE [Suspect]
     Indication: ESSENTIAL HYPERTENSION
     Dosage: 1 TABLET, QD
     Route: 048
     Dates: start: 20020523, end: 20031114
  4. GLUCOSAMINE [Concomitant]
     Indication: OSTEOARTHRITIS
     Dosage: 1 G, QD

REACTIONS (1)
  - MYOCARDIAL INFARCTION [None]
